FAERS Safety Report 21747012 (Version 3)
Quarter: 2023Q1

REPORT INFORMATION
  Report Type: Spontaneous
  Country: IT (occurrence: IT)
  Receive Date: 20221219
  Receipt Date: 20230301
  Transmission Date: 20230418
  Serious: Yes (Hospitalization, Other)
  Sender: FDA-Public Use
  Company Number: IT-009507513-2211ITA009185

PATIENT
  Age: 44 Year
  Sex: Female
  Weight: 85 kg

DRUGS (9)
  1. DELSTRIGO [Suspect]
     Active Substance: DORAVIRINE\LAMIVUDINE\TENOFOVIR DISOPROXIL FUMARATE
     Indication: HIV infection
     Dosage: DAILY
     Route: 048
     Dates: start: 20220316, end: 20220411
  2. DELSTRIGO [Suspect]
     Active Substance: DORAVIRINE\LAMIVUDINE\TENOFOVIR DISOPROXIL FUMARATE
     Dosage: DAILY
     Route: 048
     Dates: start: 20220422, end: 20220504
  3. VALPROIC ACID [Concomitant]
     Active Substance: VALPROIC ACID
     Indication: Epilepsy
     Dosage: TOTAL DAILY DOSE: 1200 MG
     Route: 048
     Dates: start: 20220306, end: 20220404
  4. LEVETIRACETAM [Concomitant]
     Active Substance: LEVETIRACETAM
     Indication: Epilepsy
     Dosage: TOTAL DAILY DOSE: 1500 MG; ORAL AND INTRAVENOUS
     Dates: start: 20220306
  5. LACOSAMIDE [Concomitant]
     Active Substance: LACOSAMIDE
     Indication: Epilepsy
     Dosage: TOTAL DAILY DOSE: 400 MG; INTRAVENOUS AND ORAL
     Dates: start: 20220306
  6. MANNITOL [Concomitant]
     Active Substance: MANNITOL
     Indication: Intracranial pressure increased
     Route: 042
  7. SOTROVIMAB [Concomitant]
     Active Substance: SOTROVIMAB
     Indication: COVID-19 prophylaxis
  8. SULFAMETHOXAZOLE\TRIMETHOPRIM [Concomitant]
     Active Substance: SULFAMETHOXAZOLE\TRIMETHOPRIM
     Indication: Pneumocystis jirovecii pneumonia
     Dosage: TOTAL DAILY DOSE: 800 MILLIGRAM
     Route: 042
     Dates: start: 20220311, end: 20220525
  9. TRIMETHOPRIM SULFATE [Concomitant]
     Active Substance: TRIMETHOPRIM SULFATE
     Indication: Pneumocystis jirovecii pneumonia
     Route: 042
     Dates: start: 20220311, end: 20220525

REACTIONS (2)
  - Hypertriglyceridaemia [Recovered/Resolved]
  - Nausea [Recovered/Resolved]

NARRATIVE: CASE EVENT DATE: 20220316
